FAERS Safety Report 9930831 (Version 3)
Quarter: 2014Q2

REPORT INFORMATION
  Report Type: Spontaneous
  Country: US (occurrence: US)
  Receive Date: 20140227
  Receipt Date: 20140625
  Transmission Date: 20141212
  Serious: Yes (Other)
  Sender: FDA-Public Use
  Company Number: US-GILEAD-2014-0095557

PATIENT
  Sex: Female

DRUGS (2)
  1. LETAIRIS [Suspect]
     Indication: PULMONARY ARTERIAL HYPERTENSION
     Dosage: 5 MG, QD
     Route: 048
     Dates: start: 20130711
  2. ADCIRCA [Concomitant]

REACTIONS (4)
  - Pneumonia [Unknown]
  - Gastric disorder [Unknown]
  - Dehydration [Unknown]
  - Bronchitis [Unknown]
